FAERS Safety Report 24765323 (Version 1)
Quarter: 2024Q4

REPORT INFORMATION
  Report Type: Spontaneous
  Country: US (occurrence: None)
  Receive Date: 20241219
  Receipt Date: 20241219
  Transmission Date: 20250115
  Serious: Yes (Hospitalization)
  Sender: Public
  Company Number: None

PATIENT
  Age: 67 Year
  Sex: Male
  Weight: 94 kg

DRUGS (1)
  1. PREDNISONE [Suspect]
     Active Substance: PREDNISONE
     Indication: Upper respiratory tract infection
     Dosage: FREQUENCY : DAILY;?
     Dates: start: 20240524, end: 20240525

REACTIONS (7)
  - Pneumonia [None]
  - Headache [None]
  - Limb injury [None]
  - Wound [None]
  - Psychotic disorder [None]
  - Agitation [None]
  - Suicidal ideation [None]

NARRATIVE: CASE EVENT DATE: 20240525
